FAERS Safety Report 19183380 (Version 1)
Quarter: 2021Q2

REPORT INFORMATION
  Report Type: Spontaneous
  Country: KR (occurrence: KR)
  Receive Date: 20210427
  Receipt Date: 20210427
  Transmission Date: 20210717
  Serious: Yes (Hospitalization, Other)
  Sender: FDA-Public Use
  Company Number: KR-ALKEM LABORATORIES LIMITED-KR-ALKEM-2021-02191

PATIENT
  Age: 58 Year
  Sex: Female

DRUGS (1)
  1. MORPHINE SULFATE. [Suspect]
     Active Substance: MORPHINE SULFATE
     Indication: PRODUCT USED FOR UNKNOWN INDICATION
     Dosage: UNK
     Route: 037

REACTIONS (10)
  - Pupillary disorder [Unknown]
  - Respiratory acidosis [Unknown]
  - Dysarthria [Unknown]
  - Respiratory rate decreased [Unknown]
  - Loss of consciousness [Recovered/Resolved]
  - Overdose [Unknown]
  - Hemiparesis [Unknown]
  - Hypercapnia [Unknown]
  - Transient ischaemic attack [Unknown]
  - Hypoxia [Unknown]
